FAERS Safety Report 9244423 (Version 2)
Quarter: 2013Q3

REPORT INFORMATION
  Report Type: Spontaneous
  Country: JP (occurrence: JP)
  Receive Date: 20130422
  Receipt Date: 20130828
  Transmission Date: 20140515
  Serious: Yes (Other)
  Sender: FDA-Public Use
  Company Number: JP-JNJFOC-20130410077

PATIENT
  Age: 66 Year
  Sex: Male

DRUGS (8)
  1. REMICADE [Suspect]
     Indication: PUSTULAR PSORIASIS
     Route: 042
     Dates: start: 20111220
  2. REMICADE [Suspect]
     Indication: PUSTULAR PSORIASIS
     Dosage: 6TH DOSE
     Route: 042
     Dates: start: 20120719
  3. NEORAL [Concomitant]
     Indication: PROPHYLAXIS
     Route: 048
     Dates: start: 20121108, end: 201303
  4. NEORAL [Concomitant]
     Indication: PROPHYLAXIS
     Route: 048
     Dates: start: 2005, end: 2008
  5. TIGASON [Concomitant]
     Indication: PROPHYLAXIS
     Route: 048
     Dates: start: 20120202
  6. XYZAL [Concomitant]
     Indication: PROPHYLAXIS
     Route: 048
     Dates: start: 20120202
  7. DOVONEX [Concomitant]
     Indication: PROPHYLAXIS
     Route: 048
     Dates: start: 20120202
  8. METHOTREXATE [Concomitant]
     Route: 048
     Dates: end: 2011

REACTIONS (2)
  - Rectal cancer [Not Recovered/Not Resolved]
  - Metastases to liver [Unknown]
